FAERS Safety Report 4664304-X (Version None)
Quarter: 2005Q2

REPORT INFORMATION
  Report Type: 
  Country: None (occurrence: None)
  Receive Date: 20050518
  Receipt Date: 20050412
  Transmission Date: 20051028
  Serious: Yes (Hospitalization, Other)
  Sender: FDA-Public Use
  Company Number: PHBS2005JP05142

PATIENT
  Age: 69 Year
  Sex: 0

DRUGS (9)
  1. ZYLORIC [Suspect]
     Route: 048
     Dates: end: 20050319
  2. HARNAL [Concomitant]
     Route: 048
  3. MYSLEE [Concomitant]
     Route: 048
  4. LANIRAPID [Concomitant]
     Indication: ATRIAL FIBRILLATION
     Route: 048
     Dates: start: 20050318, end: 20050322
  5. DIART [Concomitant]
     Indication: ATRIAL FIBRILLATION
     Route: 048
     Dates: start: 20050318
  6. ALDACTONE [Concomitant]
     Route: 048
     Dates: start: 20050318
  7. WARFARIN [Concomitant]
     Route: 048
     Dates: start: 20050318
  8. CIBENOL [Concomitant]
     Dates: start: 20050318
  9. DIOVAN [Suspect]
     Indication: HYPERTENSION
     Dosage: 80 MG, QD
     Route: 048
     Dates: start: 20050314, end: 20050319

REACTIONS (3)
  - ATRIAL FIBRILLATION [None]
  - INTERSTITIAL LUNG DISEASE [None]
  - LYMPHOCYTIC INFILTRATION [None]
